FAERS Safety Report 19524881 (Version 1)
Quarter: 2021Q3

REPORT INFORMATION
  Report Type: Spontaneous
  Country: US (occurrence: US)
  Receive Date: 20210712
  Receipt Date: 20210712
  Transmission Date: 20211014
  Serious: No
  Sender: FDA-Public Use
  Company Number: None

PATIENT
  Age: 81 Year
  Sex: Male
  Weight: 83 kg

DRUGS (22)
  1. ICLUSIG 45MG [Concomitant]
  2. FLONASE ALLERGY RELIEF 50MCG/ACT [Concomitant]
  3. LASIX [Concomitant]
     Active Substance: FUROSEMIDE
  4. HYDRALAZINE [Concomitant]
     Active Substance: HYDRALAZINE HYDROCHLORIDE
  5. CARVEDILOL 25MG [Concomitant]
     Active Substance: CARVEDILOL
  6. BUDESONIDE 0.25MG/2ML [Concomitant]
  7. CO Q?10 100MG [Concomitant]
  8. LASIX 20MG [Concomitant]
  9. IMATINIB MESYLATE. [Suspect]
     Active Substance: IMATINIB MESYLATE
     Indication: CHRONIC MYELOID LEUKAEMIA
     Route: 048
     Dates: start: 20210520
  10. CLOPIDOGREL [Concomitant]
     Active Substance: CLOPIDOGREL BISULFATE
  11. FERROUS SULFATE 325MG [Concomitant]
     Active Substance: FERROUS SULFATE
  12. NORCO 7.5?325MG [Concomitant]
  13. AMLODIPINE [Concomitant]
     Active Substance: AMLODIPINE BESYLATE
  14. POTASSIUM CHLORIDE ER 10MEQ [Concomitant]
     Active Substance: POTASSIUM CHLORIDE
  15. LORATADINE 10MG [Concomitant]
     Active Substance: LORATADINE
  16. KRILL OIL 100MG [Concomitant]
  17. LANTUS SOLOSTAR 100UNIT/ML [Concomitant]
  18. PROCHLORPERAZINE 10MG [Concomitant]
  19. LISINOPRIL. [Concomitant]
     Active Substance: LISINOPRIL
  20. REPATHA [Concomitant]
     Active Substance: EVOLOCUMAB
  21. ASPIRIN 81MG [Concomitant]
     Active Substance: ASPIRIN
  22. FAMOTIDINE 20MG [Concomitant]
     Active Substance: FAMOTIDINE

REACTIONS (1)
  - Dyspnoea [None]

NARRATIVE: CASE EVENT DATE: 20210712
